FAERS Safety Report 7166848-8 (Version None)
Quarter: 2010Q4

REPORT INFORMATION
  Report Type: 
  Country: None (occurrence: None)
  Receive Date: 20101213
  Receipt Date: 20101213
  Transmission Date: 20110411
  Serious: Yes (Hospitalization, Disabling)
  Sender: FDA-Public Use
  Company Number: None

PATIENT
  Sex: Female
  Weight: 52.6173 kg

DRUGS (2)
  1. CIPRO [Suspect]
     Indication: COLECTOMY
     Dosage: 500 MG 2X DAY PO
     Route: 048
     Dates: start: 20031223, end: 20040113
  2. CIPRO [Suspect]
     Indication: DIVERTICULITIS
     Dosage: 500 MG 2X DAY PO
     Route: 048
     Dates: start: 20090212, end: 20090222

REACTIONS (12)
  - AMNESIA [None]
  - ANXIETY [None]
  - ARTHRALGIA [None]
  - ARTHROPATHY [None]
  - BURNING SENSATION [None]
  - HEADACHE [None]
  - JOINT DESTRUCTION [None]
  - SUICIDAL IDEATION [None]
  - TINNITUS [None]
  - VERTIGO [None]
  - VISUAL IMPAIRMENT [None]
  - WEIGHT DECREASED [None]
